FAERS Safety Report 21345696 (Version 1)
Quarter: 2022Q3

REPORT INFORMATION
  Report Type: Spontaneous
  Country: US (occurrence: US)
  Receive Date: 20220916
  Receipt Date: 20220916
  Transmission Date: 20221027
  Serious: Yes (Hospitalization)
  Sender: FDA-Public Use
  Company Number: US-BEIGENE, LTD-BGN-2022-009146

PATIENT

DRUGS (2)
  1. BRUKINSA [Suspect]
     Active Substance: ZANUBRUTINIB
     Indication: Marginal zone lymphoma
     Dosage: 160 MILLIGRAM, BID
     Dates: start: 202208
  2. COREG [Concomitant]
     Active Substance: CARVEDILOL
     Indication: Chest discomfort
     Dosage: UNK

REACTIONS (3)
  - Dyspnoea [Unknown]
  - Chest discomfort [Unknown]
  - Palpitations [Unknown]
